FAERS Safety Report 16601758 (Version 2)
Quarter: 2019Q3

REPORT INFORMATION
  Report Type: Spontaneous
  Country: JP (occurrence: JP)
  Receive Date: 20190719
  Receipt Date: 20190918
  Transmission Date: 20191004
  Serious: Yes (Death, Life-Threatening, Hospitalization, Other)
  Sender: FDA-Public Use
  Company Number: PHHY2019JP166023

PATIENT
  Age: 67 Year
  Sex: Male

DRUGS (7)
  1. OXYGEN. [Concomitant]
     Active Substance: OXYGEN
     Indication: ACUTE RESPIRATORY FAILURE
     Dosage: 10 L, QN
     Route: 065
  2. METHYLPREDNISOLONE. [Suspect]
     Active Substance: METHYLPREDNISOLONE
     Dosage: 60 MG, UNK ( DAYS 21-27)
     Route: 042
  3. METHYLPREDNISOLONE. [Suspect]
     Active Substance: METHYLPREDNISOLONE
     Dosage: 50 MG, UNK (ON DAY 28)
     Route: 042
  4. PEMBROLIZUMAB. [Concomitant]
     Active Substance: PEMBROLIZUMAB
     Indication: LUNG ADENOCARCINOMA STAGE IV
     Route: 065
  5. METHYLPREDNISOLONE. [Suspect]
     Active Substance: METHYLPREDNISOLONE
     Indication: IMMUNE-MEDIATED PNEUMONITIS
     Dosage: 125 MG, UNK
     Route: 042
  6. METHYLPREDNISOLONE. [Suspect]
     Active Substance: METHYLPREDNISOLONE
     Dosage: 250 MG, UNK (ON DAYS 15-17)
     Route: 042
  7. METHYLPREDNISOLONE. [Suspect]
     Active Substance: METHYLPREDNISOLONE
     Dosage: 125 MG, UNK (ON DAY 18-20)
     Route: 042

REACTIONS (6)
  - Hypoxia [Fatal]
  - Diffuse alveolar damage [Fatal]
  - Immune-mediated pneumonitis [Fatal]
  - Drug ineffective for unapproved indication [Fatal]
  - Pleural effusion [Fatal]
  - Respiratory failure [Fatal]
